FAERS Safety Report 23631142 (Version 1)
Quarter: 2024Q1

REPORT INFORMATION
  Report Type: Spontaneous
  Country: ES (occurrence: ES)
  Receive Date: 20240314
  Receipt Date: 20240314
  Transmission Date: 20240410
  Serious: Yes (Other)
  Sender: FDA-Public Use
  Company Number: None

PATIENT
  Age: 55 Year
  Sex: Male
  Weight: 58 kg

DRUGS (4)
  1. AZITHROMYCIN [Interacting]
     Active Substance: AZITHROMYCIN
     Indication: Lower respiratory tract infection
     Dosage: AZITROMICINA (7019A)
     Route: 048
     Dates: start: 20231227, end: 20240123
  2. VANCOMYCIN [Interacting]
     Active Substance: VANCOMYCIN
     Indication: Lower respiratory tract infection
     Dosage: (3197A)
     Route: 042
     Dates: start: 20240110, end: 20240110
  3. MEROPENEM [Interacting]
     Active Substance: MEROPENEM
     Indication: Haemophilus sepsis
     Dosage: (7155A)
     Route: 042
     Dates: start: 20240105, end: 20240110
  4. OMEPRAZOLE [Interacting]
     Active Substance: OMEPRAZOLE
     Indication: Prophylaxis
     Dosage: OMEPRAZOL (2141A)
     Route: 048
     Dates: start: 20231226

REACTIONS (1)
  - Pseudomembranous colitis [Recovered/Resolved]

NARRATIVE: CASE EVENT DATE: 20240115
